FAERS Safety Report 4828058-6 (Version None)
Quarter: 2005Q4

REPORT INFORMATION
  Report Type: 
  Country: None (occurrence: None)
  Receive Date: 20051110
  Receipt Date: 20051004
  Transmission Date: 20060501
  Serious: Yes (Hospitalization)
  Sender: FDA-Public Use
  Company Number: 2005BI018533

PATIENT
  Age: 54 Year
  Sex: Female

DRUGS (8)
  1. AVONEX [Suspect]
     Indication: MULTIPLE SCLEROSIS
     Dosage: 30 UG; QW; IM
     Route: 030
     Dates: start: 19990901, end: 20050526
  2. AMITRIPTYLINE HCL [Concomitant]
  3. BACLOFEN [Concomitant]
  4. COZAAR [Concomitant]
  5. HYDROCHLOROTHIAZIDE [Concomitant]
  6. LIPITOR [Concomitant]
  7. IMURAN [Concomitant]
  8. NORVASC [Concomitant]

REACTIONS (6)
  - ABASIA [None]
  - BRONCHITIS [None]
  - HEPATIC CYST [None]
  - HEPATIC STEATOSIS [None]
  - HYPERPLASTIC CHOLECYSTOPATHY [None]
  - MULTIPLE SCLEROSIS RELAPSE [None]
